FAERS Safety Report 9913131 (Version 1)
Quarter: 2014Q1

REPORT INFORMATION
  Report Type: Spontaneous
  Country: FR (occurrence: None)
  Receive Date: 20140214
  Receipt Date: 20140214
  Transmission Date: 20141002
  Serious: Yes (Other)
  Sender: FDA-Public Use
  Company Number: 2174556

PATIENT
  Age: 73 Year
  Sex: Female

DRUGS (6)
  1. CARBOPLATIN [Suspect]
     Indication: OVARIAN EPITHELIAL CANCER
     Dates: start: 20131108, end: 20131108
  2. PACLITAXEL [Concomitant]
  3. METHYLPREDNISOLONE [Concomitant]
  4. RANITIDINE [Concomitant]
  5. DEXCHLORPHENIRAMINE [Concomitant]
  6. GRANISETRON [Concomitant]

REACTIONS (2)
  - Infusion related reaction [None]
  - Drug hypersensitivity [None]
